FAERS Safety Report 9472232 (Version 1)
Quarter: 2013Q3

REPORT INFORMATION
  Report Type: Spontaneous
  Country: FR (occurrence: FR)
  Receive Date: 20130823
  Receipt Date: 20130823
  Transmission Date: 20140515
  Serious: Yes (Hospitalization)
  Sender: FDA-Public Use
  Company Number: FR-ABBOTT-13X-056-1134892-00

PATIENT
  Age: 42 Year
  Sex: Female

DRUGS (4)
  1. LIPANTHYL [Suspect]
     Indication: VOMITING
     Route: 048
     Dates: start: 20130424, end: 20130424
  2. LAMALINE [Concomitant]
     Indication: PRODUCT USED FOR UNKNOWN INDICATION
  3. LAROXYL [Concomitant]
     Indication: PRODUCT USED FOR UNKNOWN INDICATION
  4. ACUPAN [Concomitant]
     Indication: PRODUCT USED FOR UNKNOWN INDICATION

REACTIONS (6)
  - Intentional drug misuse [Recovered/Resolved]
  - Generalised erythema [Recovered/Resolved]
  - Self-medication [Unknown]
  - Off label use [Unknown]
  - Pruritus [Unknown]
  - Muscle spasms [Unknown]
